FAERS Safety Report 9460099 (Version 2)
Quarter: 2013Q3

REPORT INFORMATION
  Report Type: Spontaneous
  Country: US (occurrence: US)
  Receive Date: 20130815
  Receipt Date: 20130827
  Transmission Date: 20140515
  Serious: Yes (Other)
  Sender: FDA-Public Use
  Company Number: US-FRI-1000047736

PATIENT
  Age: 76 Year
  Sex: Male

DRUGS (3)
  1. LEXAPRO [Suspect]
     Indication: DEPRESSION
     Dosage: 20 MG
     Dates: start: 2003, end: 20130810
  2. VIIBRYD [Concomitant]
     Indication: DEPRESSION
     Dosage: 10 MG
     Route: 048
  3. VIIBRYD [Concomitant]
     Dosage: 20 MG
     Route: 048

REACTIONS (3)
  - Parkinson^s disease [Not Recovered/Not Resolved]
  - Drug ineffective [Recovered/Resolved]
  - Prescribed overdose [Recovered/Resolved]
